FAERS Safety Report 7000846-X (Version None)
Quarter: 2010Q3

REPORT INFORMATION
  Report Type: 
  Country: None (occurrence: None)
  Receive Date: 20100920
  Receipt Date: 20100316
  Transmission Date: 20110219
  Serious: No
  Sender: FDA-Public Use
  Company Number: US-ASTRAZENECA-2010SE11470

PATIENT
  Sex: Female

DRUGS (4)
  1. SEROQUEL [Suspect]
     Indication: BIPOLAR DISORDER
     Dosage: TOTAL DAILY DOSE 700 MG TID, 150MG - 150MG - 400MG
     Route: 048
     Dates: start: 20100201, end: 20100301
  2. SEROQUEL [Suspect]
     Indication: DEPRESSION
     Dosage: TOTAL DAILY DOSE 700 MG TID, 150MG - 150MG - 400MG
     Route: 048
     Dates: start: 20100201, end: 20100301
  3. SEROQUEL [Suspect]
     Route: 048
     Dates: start: 20100301, end: 20100312
  4. SEROQUEL [Suspect]
     Route: 048
     Dates: start: 20100301, end: 20100312

REACTIONS (7)
  - ASTHENIA [None]
  - CONFUSIONAL STATE [None]
  - DIARRHOEA [None]
  - DRUG DOSE OMISSION [None]
  - FEELING JITTERY [None]
  - INSOMNIA [None]
  - NAUSEA [None]
